FAERS Safety Report 5226811-0 (Version None)
Quarter: 2007Q1

REPORT INFORMATION
  Report Type: 
  Country: None (occurrence: None)
  Receive Date: 20070201
  Receipt Date: 20070117
  Transmission Date: 20070707
  Serious: Yes (Other)
  Sender: FDA-Public Use
  Company Number: HQWYE818218JAN07

PATIENT
  Sex: Male

DRUGS (7)
  1. ENBREL [Suspect]
     Indication: JUVENILE ARTHRITIS
     Route: 058
     Dates: start: 20030304, end: 20061219
  2. METHOTREXATE [Concomitant]
     Dosage: UNKNOWN
     Dates: end: 20050101
  3. LEFLUNOMIDE [Concomitant]
     Dosage: UNKNOWN
     Dates: start: 20000401, end: 20061001
  4. CYCLOSPORINE [Concomitant]
     Dosage: UNKNOWN
     Dates: end: 20050601
  5. TACROLIMUS [Concomitant]
     Dosage: UNKNOWN
     Dates: start: 20050601
  6. CALCORT [Concomitant]
     Dosage: UNKNOWN
     Dates: end: 20050101
  7. METHYLPREDNISOLONE 16MG TAB [Concomitant]
     Dosage: UNKNOWN
     Route: 042
     Dates: end: 20050201

REACTIONS (1)
  - COLITIS ULCERATIVE [None]
